FAERS Safety Report 9180193 (Version 1)
Quarter: 2013Q1

REPORT INFORMATION
  Report Type: Spontaneous
  Country: US (occurrence: US)
  Receive Date: 20130321
  Receipt Date: 20130321
  Transmission Date: 20140127
  Serious: Yes (Other)
  Sender: FDA-Public Use
  Company Number: US-LUNDBECK-DKLU1089718

PATIENT
  Sex: Male

DRUGS (3)
  1. SABRIL [Suspect]
     Indication: EPILEPSY
     Dates: start: 20120910
  2. SABRIL [Suspect]
     Indication: SIMPLE PARTIAL SEIZURES
  3. LAMOTRIGINE [Suspect]
     Indication: PRODUCT USED FOR UNKNOWN INDICATION

REACTIONS (3)
  - Grand mal convulsion [Unknown]
  - Photopsia [Unknown]
  - Drug ineffective [Unknown]
